FAERS Safety Report 16035490 (Version 1)
Quarter: 2019Q1

REPORT INFORMATION
  Report Type: Spontaneous
  Country: GB (occurrence: GB)
  Receive Date: 20190305
  Receipt Date: 20190305
  Transmission Date: 20190418
  Serious: Yes (Other)
  Sender: FDA-Public Use
  Company Number: GB-TEVA-2019-GB-1017933

PATIENT
  Age: 86 Year

DRUGS (22)
  1. IOPODATE SODIUM [Concomitant]
  2. ETOMIDATE. [Concomitant]
     Active Substance: ETOMIDATE
  3. POTASSIUM IODATE [Concomitant]
     Active Substance: POTASSIUM IODATE
  4. ATORVASTATIN [Concomitant]
     Active Substance: ATORVASTATIN
  5. HYDROCORTISONE. [Concomitant]
     Active Substance: HYDROCORTISONE
  6. OMEPRAZOLE. [Concomitant]
     Active Substance: OMEPRAZOLE
  7. METHYLPHENIDATE. [Concomitant]
     Active Substance: METHYLPHENIDATE
  8. LISINOPRIL. [Concomitant]
     Active Substance: LISINOPRIL
  9. OLANZAPINE. [Concomitant]
     Active Substance: OLANZAPINE
  10. MEMANTINE. [Concomitant]
     Active Substance: MEMANTINE
  11. SODIUM FUSIDATE [Concomitant]
     Active Substance: FUSIDATE SODIUM
  12. NAPROXEN. [Concomitant]
     Active Substance: NAPROXEN
  13. SPIRONOLACTONE. [Concomitant]
     Active Substance: SPIRONOLACTONE
  14. FUROSEMIDE. [Concomitant]
     Active Substance: FUROSEMIDE
  15. AMILORIDE/FUROSEMIDE [Concomitant]
     Active Substance: AMILORIDE\FUROSEMIDE
  16. TRIMETHOPRIM. [Suspect]
     Active Substance: TRIMETHOPRIM
     Indication: URINARY TRACT INFECTION
     Route: 065
  17. KETOPROFEN. [Concomitant]
     Active Substance: KETOPROFEN
  18. DEXMETHYLPHENIDATE [Concomitant]
     Active Substance: DEXMETHYLPHENIDATE HYDROCHLORIDE
  19. AMOXICILLIN. [Concomitant]
     Active Substance: AMOXICILLIN
  20. TRIAMTERENE. [Concomitant]
     Active Substance: TRIAMTERENE
  21. ACETYLSALICYLIC ACID [Concomitant]
     Active Substance: ASPIRIN
  22. ESOMEPRAZOLE. [Concomitant]
     Active Substance: ESOMEPRAZOLE MAGNESIUM

REACTIONS (3)
  - Delirium [Unknown]
  - Fall [Unknown]
  - Acute kidney injury [Recovered/Resolved]

NARRATIVE: CASE EVENT DATE: 20180719
